FAERS Safety Report 8484522-2 (Version None)
Quarter: 2012Q3

REPORT INFORMATION
  Report Type: 
  Country: None (occurrence: None)
  Receive Date: 20120703
  Receipt Date: 20120627
  Transmission Date: 20120928
  Serious: Yes (Death, Hospitalization)
  Sender: FDA-Public Use
  Company Number: US-COVIDIEN/TYCO HEALTHCARE/MALLINCKRODT-T201202666

PATIENT
  Age: 71 Year
  Sex: Male

DRUGS (1)
  1. METHADOSE [Suspect]
     Indication: DRUG WITHDRAWAL MAINTENANCE THERAPY
     Dosage: 50 MG QD

REACTIONS (4)
  - INFECTIOUS PERITONITIS [None]
  - FAECALOMA [None]
  - INTESTINAL PERFORATION [None]
  - ACUTE RESPIRATORY FAILURE [None]
